FAERS Safety Report 22202167 (Version 2)
Quarter: 2023Q2

REPORT INFORMATION
  Report Type: Spontaneous
  Country: CN (occurrence: CN)
  Receive Date: 20230412
  Receipt Date: 20230412
  Transmission Date: 20230722
  Serious: Yes (Other)
  Sender: FDA-Public Use
  Company Number: CN-MLMSERVICE-20230329-4192626-1

PATIENT
  Sex: Female

DRUGS (6)
  1. METHOTREXATE SODIUM [Suspect]
     Active Substance: METHOTREXATE SODIUM
     Indication: Chloroma
     Dosage: FOUR TIMES AT 0, 4, 6 AND 19 DAYS AFTER STARTING CHEMOTHERAPY
     Route: 037
     Dates: start: 201509
  2. METHOTREXATE SODIUM [Suspect]
     Active Substance: METHOTREXATE SODIUM
     Indication: Central nervous system leukaemia
  3. CYTARABINE [Suspect]
     Active Substance: CYTARABINE
     Indication: Central nervous system leukaemia
     Dosage: 6 G/M2 ON DAYS 1-3
     Dates: start: 201509
  4. CYTARABINE [Suspect]
     Active Substance: CYTARABINE
     Indication: Chloroma
     Dosage: CYTARABINE 50MG, FOUR TIMES AT 0, 4, 6 AND 19 DAYS AFTER STARTING CHEMOTHERAPY
     Route: 037
     Dates: start: 201509
  5. DEXAMETHASONE [Suspect]
     Active Substance: DEXAMETHASONE
     Indication: Central nervous system leukaemia
     Dosage: 5MG, FOUR TIMES AT 0, 4, 6 AND 19 DAYS AFTER STARTING CHEMOTHERAPY
     Route: 037
     Dates: start: 201509
  6. DEXAMETHASONE [Suspect]
     Active Substance: DEXAMETHASONE
     Indication: Chloroma

REACTIONS (1)
  - Myelosuppression [Unknown]

NARRATIVE: CASE EVENT DATE: 20150101
